FAERS Safety Report 7141681-1 (Version None)
Quarter: 2010Q4

REPORT INFORMATION
  Report Type: 
  Country: None (occurrence: None)
  Receive Date: 20101207
  Receipt Date: 20101125
  Transmission Date: 20110411
  Serious: Yes (Other)
  Sender: FDA-Public Use
  Company Number: PHHY2010MX80667

PATIENT
  Age: 65 Year
  Sex: Female

DRUGS (1)
  1. ACLASTA [Suspect]
     Indication: OSTEOPOROSIS
     Dosage: 1 APPLICATION (5 MG/100 ML) YEARLY IV ON INFUSION
     Dates: start: 20091101

REACTIONS (3)
  - FATIGUE [None]
  - INFLAMMATION [None]
  - THROMBOSIS [None]
